FAERS Safety Report 10042830 (Version 1)
Quarter: 2014Q1

REPORT INFORMATION
  Report Type: Report from Study
  Country: AR (occurrence: AR)
  Receive Date: 20140327
  Receipt Date: 20140327
  Transmission Date: 20141002
  Serious: Yes (Death)
  Sender: FDA-Public Use
  Company Number: PHHY2014AR037538

PATIENT
  Age: 89 Year
  Sex: Female

DRUGS (1)
  1. EXELON [Suspect]
     Indication: SENILE DEMENTIA
     Dosage: 3 MG, QD
     Route: 048

REACTIONS (2)
  - Death [Fatal]
  - Nervousness [Unknown]
